FAERS Safety Report 12220435 (Version 1)
Quarter: 2016Q1

REPORT INFORMATION
  Report Type: Report from Study
  Country: JP (occurrence: JP)
  Receive Date: 20160330
  Receipt Date: 20160330
  Transmission Date: 20160526
  Serious: Yes (Hospitalization, Other)
  Sender: FDA-Public Use
  Company Number: JP-BRISTOL-MYERS SQUIBB COMPANY-BMS-2016-023178

PATIENT
  Age: 64 Year
  Sex: Male
  Weight: 59 kg

DRUGS (2)
  1. ALDACTONE-A [Suspect]
     Active Substance: SPIRONOLACTONE
     Indication: CARDIAC FAILURE
     Dosage: 25 MG, UNK
     Route: 048
     Dates: start: 20140609, end: 20141026
  2. APIXABAN [Suspect]
     Active Substance: APIXABAN
     Indication: THROMBOSIS PROPHYLAXIS
     Dosage: 5 MG, BID
     Route: 048
     Dates: start: 20140609, end: 20141026

REACTIONS (1)
  - Cholangitis acute [Recovering/Resolving]

NARRATIVE: CASE EVENT DATE: 20141026
